FAERS Safety Report 4323628-6 (Version None)
Quarter: 2004Q1

REPORT INFORMATION
  Report Type: 
  Country: None (occurrence: None)
  Receive Date: 20040326
  Receipt Date: 20040317
  Transmission Date: 20041129
  Serious: Yes (Other)
  Sender: FDA-Public Use
  Company Number: PHEH2004US03204

PATIENT
  Sex: Male

DRUGS (1)
  1. TRILEPTAL [Suspect]
     Indication: IMPULSE-CONTROL DISORDER
     Dosage: GRADUAL INCREASE  TO 1200MG/DAY
     Dates: start: 20030901

REACTIONS (2)
  - CONDITION AGGRAVATED [None]
  - SPEECH DISORDER DEVELOPMENTAL [None]
